FAERS Safety Report 14924843 (Version 1)
Quarter: 2018Q2

REPORT INFORMATION
  Report Type: Spontaneous
  Country: US (occurrence: US)
  Receive Date: 20180522
  Receipt Date: 20180522
  Transmission Date: 20180711
  Serious: No
  Sender: FDA-Public Use
  Company Number: US-MEDIMETRIKS-2017-US-015516

PATIENT
  Age: 65 Year
  Sex: Female

DRUGS (1)
  1. FLUOCINOLONE ACETONIDE TOPICAL [Suspect]
     Active Substance: FLUOCINOLONE ACETONIDE
     Indication: RASH
     Dosage: APPLIED TO SCALP AND HAIRLINE
     Route: 061
     Dates: start: 20171224, end: 20171224

REACTIONS (5)
  - Skin burning sensation [Recovered/Resolved]
  - Erythema [Recovered/Resolved]
  - Skin irritation [Recovered/Resolved]
  - Inflammation [Recovered/Resolved]
  - Swelling [Recovering/Resolving]

NARRATIVE: CASE EVENT DATE: 20171224
